FAERS Safety Report 6875533-9 (Version None)
Quarter: 2010Q3

REPORT INFORMATION
  Report Type: 
  Country: None (occurrence: None)
  Receive Date: 20100727
  Receipt Date: 20100716
  Transmission Date: 20110219
  Serious: Yes (Hospitalization)
  Sender: FDA-Public Use
  Company Number: JP-JNJFOC-20080904765

PATIENT
  Sex: Male
  Weight: 44 kg

DRUGS (14)
  1. REMICADE [Suspect]
     Indication: RHEUMATOID ARTHRITIS
     Dosage: TOTAL OF 2 INFUSIONS ADMINISTERED
     Route: 042
  2. REMICADE [Suspect]
     Route: 042
  3. REMICADE [Suspect]
     Route: 042
  4. REMICADE [Suspect]
     Route: 042
  5. PYRAZINAMIDE [Suspect]
     Indication: TUBERCULOSIS
  6. PREDONINE [Concomitant]
     Indication: RHEUMATOID ARTHRITIS
     Dosage: ORAL ADMINISTRATION
     Route: 048
  7. PREDONINE [Concomitant]
     Dosage: ORAL ADMINISTRATION
     Route: 048
  8. PREDONINE [Concomitant]
     Dosage: INTRAVENOUS ROUTE
     Route: 048
  9. RHEUMATREX [Concomitant]
     Indication: RHEUMATOID ARTHRITIS
     Route: 048
  10. RHEUMATREX [Concomitant]
     Route: 048
  11. LOXONIN [Concomitant]
     Indication: RHEUMATOID ARTHRITIS
     Route: 048
  12. NEOISCOTIN [Concomitant]
     Indication: ANTIBIOTIC PROPHYLAXIS
     Route: 048
  13. SELBEX [Concomitant]
     Route: 048
  14. MYSLEE [Concomitant]
     Route: 048

REACTIONS (4)
  - LIVER DISORDER [None]
  - PNEUMONIA BACTERIAL [None]
  - PULMONARY TUBERCULOSIS [None]
  - TUBERCULOUS PLEURISY [None]
